FAERS Safety Report 4800907-7 (Version None)
Quarter: 2005Q4

REPORT INFORMATION
  Report Type: 
  Country: None (occurrence: None)
  Receive Date: 20051017
  Receipt Date: 20050901
  Transmission Date: 20060501
  Serious: Yes (Life-Threatening, Hospitalization)
  Sender: FDA-Public Use
  Company Number: US-BRISTOL-MYERS SQUIBB COMPANY-13098215

PATIENT
  Age: 70 Year
  Sex: Female

DRUGS (10)
  1. ABILIFY [Suspect]
     Indication: BIPOLAR I DISORDER
     Route: 048
     Dates: start: 20050315, end: 20050101
  2. LEXAPRO [Concomitant]
     Route: 048
  3. LOTENSIN [Concomitant]
     Route: 048
  4. PREMARIN [Concomitant]
     Route: 048
  5. PREVACID [Concomitant]
     Route: 048
  6. CRESTOR [Concomitant]
     Route: 048
  7. ATIVAN [Concomitant]
     Route: 048
  8. NORVASC [Concomitant]
  9. WELLBUTRIN SR [Concomitant]
  10. ASPIRIN [Concomitant]

REACTIONS (4)
  - HYPERGLYCAEMIA [None]
  - HYPERPHAGIA [None]
  - POLYDIPSIA [None]
  - POLYURIA [None]
